FAERS Safety Report 19998148 (Version 1)
Quarter: 2021Q4

REPORT INFORMATION
  Report Type: Spontaneous
  Country: NL (occurrence: HR)
  Receive Date: 20211026
  Receipt Date: 20211026
  Transmission Date: 20220303
  Serious: Yes (Other)
  Sender: FDA-Public Use
  Company Number: None

PATIENT
  Age: 55 Year
  Sex: Male
  Weight: 110 kg

DRUGS (1)
  1. OXALIPLATIN [Suspect]
     Active Substance: OXALIPLATIN
     Indication: Colon cancer
     Dosage: UNK
     Route: 041

REACTIONS (11)
  - Cardio-respiratory arrest [Unknown]
  - Electrocardiogram ST segment elevation [Unknown]
  - Erythema [Unknown]
  - Dyspnoea [Unknown]
  - Generalised tonic-clonic seizure [Unknown]
  - Ventricular fibrillation [Unknown]
  - Arteriospasm coronary [Unknown]
  - Chest discomfort [Unknown]
  - Asthenia [Unknown]
  - Loss of consciousness [Unknown]
  - Atrial fibrillation [Unknown]

NARRATIVE: CASE EVENT DATE: 20210714
